FAERS Safety Report 10971264 (Version 1)
Quarter: 2015Q1

REPORT INFORMATION
  Report Type: Spontaneous
  Country: US (occurrence: US)
  Receive Date: 20150331
  Receipt Date: 20150331
  Transmission Date: 20150721
  Serious: Yes (Hospitalization)
  Sender: FDA-Public Use
  Company Number: US-BAYER-2015-070757

PATIENT
  Age: 40 Year
  Sex: Female
  Weight: 78.82 kg

DRUGS (6)
  1. YAZ [Suspect]
     Active Substance: DROSPIRENONE\ETHINYL ESTRADIOL
  2. YASMIN [Suspect]
     Active Substance: DROSPIRENONE\ETHINYL ESTRADIOL
  3. MOTRIN [Concomitant]
     Active Substance: IBUPROFEN
     Dosage: DAILY
     Route: 048
  4. MORPHINE [Concomitant]
     Active Substance: MORPHINE
     Dosage: 2 MG, UNK
     Route: 042
  5. TORADOL [Concomitant]
     Active Substance: KETOROLAC TROMETHAMINE
     Dosage: 30 MG, UNK
     Route: 042
  6. MORPHINE [Concomitant]
     Active Substance: MORPHINE
     Dosage: 4 MG, UNK
     Route: 042

REACTIONS (1)
  - Pulmonary embolism [None]

NARRATIVE: CASE EVENT DATE: 20060920
